FAERS Safety Report 23875277 (Version 1)
Quarter: 2024Q2

REPORT INFORMATION
  Report Type: Spontaneous
  Country: US (occurrence: US)
  Receive Date: 20240520
  Receipt Date: 20240520
  Transmission Date: 20240716
  Serious: No
  Sender: FDA-Public Use
  Company Number: US-TEVA-VS-3194767

PATIENT

DRUGS (2)
  1. DIAZEPAM [Suspect]
     Active Substance: DIAZEPAM
     Indication: Product used for unknown indication
     Route: 065
  2. diazepam (Mayne brand) [Concomitant]

REACTIONS (10)
  - Paraesthesia oral [Unknown]
  - Pharyngeal swelling [Unknown]
  - Tinnitus [Unknown]
  - Muscle tightness [Unknown]
  - Paraesthesia [Unknown]
  - Muscle tightness [Unknown]
  - Nervousness [Unknown]
  - Product substitution issue [Unknown]
  - Feeling abnormal [Unknown]
  - Pruritus [Unknown]
